FAERS Safety Report 17853289 (Version 2)
Quarter: 2020Q3

REPORT INFORMATION
  Report Type: Spontaneous
  Country: US (occurrence: US)
  Receive Date: 20200602
  Receipt Date: 20200921
  Transmission Date: 20201103
  Serious: Yes (Hospitalization)
  Sender: FDA-Public Use
  Company Number: US-FOUNDATIONCONSUMERHC-2020-US-001152

PATIENT
  Age: 27 Year
  Sex: Female
  Weight: 76.2 kg

DRUGS (2)
  1. ALBUTEROL. [Concomitant]
     Active Substance: ALBUTEROL
     Dosage: AS NEEDED
  2. PLAN B ONE?STEP [Suspect]
     Active Substance: LEVONORGESTREL
     Indication: POST COITAL CONTRACEPTION
     Dosage: 1.5 MG X 1 DOSE
     Route: 048
     Dates: start: 20191229, end: 20191229

REACTIONS (13)
  - Blood prolactin increased [Unknown]
  - Headache [Not Recovered/Not Resolved]
  - Abdominal distension [Recovered/Resolved]
  - Nausea [Recovered/Resolved]
  - Fatigue [Recovered/Resolved]
  - Food craving [Recovered/Resolved]
  - Dysmenorrhoea [Recovered/Resolved]
  - Pregnancy after post coital contraception [Unknown]
  - Blood pressure abnormal [Not Recovered/Not Resolved]
  - Drug ineffective [Unknown]
  - Blood iron decreased [Unknown]
  - Vomiting [Recovered/Resolved]
  - Breast tenderness [Recovered/Resolved]

NARRATIVE: CASE EVENT DATE: 20191229
